FAERS Safety Report 7933861-X (Version None)
Quarter: 2011Q4

REPORT INFORMATION
  Report Type: 
  Country: None (occurrence: None)
  Receive Date: 20111122
  Receipt Date: 20111114
  Transmission Date: 20120403
  Serious: Yes (Other)
  Sender: FDA-Public Use
  Company Number: US-BAYER-2011-110319

PATIENT
  Sex: Female

DRUGS (5)
  1. YASMIN [Suspect]
     Dosage: UNK
     Dates: start: 20110101
  2. YASMIN [Suspect]
     Indication: CONTRACEPTION
     Dosage: UNK
     Dates: start: 20030501, end: 20100101
  3. YASMIN [Suspect]
     Dosage: UNK
     Dates: start: 20110101, end: 20110701
  4. LOESTRIN 1.5/30 [Suspect]
     Dosage: UNK
  5. GENEROUS [Suspect]

REACTIONS (11)
  - AXILLARY MASS [None]
  - MENORRHAGIA [None]
  - PAIN [None]
  - HYPOMENORRHOEA [None]
  - MIGRAINE [None]
  - OVARIAN CYST [None]
  - PANCREATITIS [None]
  - HEADACHE [None]
  - METRORRHAGIA [None]
  - BREAST MASS [None]
  - MASS [None]
